FAERS Safety Report 15828016 (Version 3)
Quarter: 2019Q2

REPORT INFORMATION
  Report Type: Report from Study
  Country: GB (occurrence: GB)
  Receive Date: 20190115
  Receipt Date: 20190508
  Transmission Date: 20190711
  Serious: Yes (Other)
  Sender: FDA-Public Use
  Company Number: GB-JNJFOC-20190114440

PATIENT
  Sex: Female

DRUGS (3)
  1. TREMFYA [Suspect]
     Active Substance: GUSELKUMAB
     Indication: PSORIASIS
     Route: 058
     Dates: start: 20190122
  2. ACICLOVIR [Concomitant]
     Active Substance: ACYCLOVIR
  3. TREMFYA [Suspect]
     Active Substance: GUSELKUMAB
     Indication: PSORIASIS
     Route: 058
     Dates: start: 20180502

REACTIONS (7)
  - Infection [Unknown]
  - Nasopharyngitis [Unknown]
  - Injection site bruising [Unknown]
  - Injection site mass [Unknown]
  - Eye infection [Unknown]
  - Injection site pain [Unknown]
  - Oral herpes [Unknown]
